FAERS Safety Report 5118704-4 (Version None)
Quarter: 2006Q4

REPORT INFORMATION
  Report Type: 
  Country: None (occurrence: None)
  Receive Date: 20061002
  Receipt Date: 20060906
  Transmission Date: 20070319
  Serious: Yes (Death, Hospitalization)
  Sender: FDA-Public Use
  Company Number: MW-GILEAD-2006-0010183

PATIENT
  Sex: Female
  Weight: 54 kg

DRUGS (5)
  1. EMTRICITABINE [Suspect]
     Indication: HIV INFECTION
     Dates: start: 20060426, end: 20060821
  2. DIDANOSINE [Suspect]
     Indication: HIV INFECTION
     Dates: start: 20060426, end: 20060821
  3. ATAZANAVIR [Suspect]
     Indication: HIV INFECTION
     Dates: start: 20060426, end: 20060821
  4. BACTRIM [Concomitant]
  5. FERROUS SULFATE TAB [Concomitant]
     Indication: ANAEMIA

REACTIONS (12)
  - ACIDOSIS [None]
  - ANAEMIA [None]
  - BLOOD ALBUMIN DECREASED [None]
  - CARDIOMEGALY [None]
  - HEPATITIS [None]
  - HEPATITIS B SURFACE ANTIGEN POSITIVE [None]
  - MALARIA [None]
  - PANCREATITIS [None]
  - PLEURAL EFFUSION [None]
  - PNEUMONIA [None]
  - SEPSIS [None]
  - URINARY TRACT INFECTION [None]
